FAERS Safety Report 24920549 (Version 1)
Quarter: 2025Q1

REPORT INFORMATION
  Report Type: Spontaneous
  Country: BR (occurrence: BR)
  Receive Date: 20250204
  Receipt Date: 20250204
  Transmission Date: 20250409
  Serious: No
  Sender: EXELIXIS
  Company Number: BR-IPSEN Group, Research and Development-2024-02760

PATIENT
  Age: 75 Year
  Sex: Male
  Weight: 75 kg

DRUGS (5)
  1. CABOMETYX [Suspect]
     Active Substance: CABOZANTINIB S-MALATE
     Indication: Metastases to kidney
     Dosage: 40 MG, QD
     Route: 065
     Dates: start: 202211
  2. CABOMETYX [Suspect]
     Active Substance: CABOZANTINIB S-MALATE
     Indication: Gastrointestinal carcinoma
     Dosage: 20 MG, QD
     Route: 065
     Dates: start: 20240122
  3. CABOMETYX [Suspect]
     Active Substance: CABOZANTINIB S-MALATE
     Indication: Off label use
  4. FINASTERIDE [Concomitant]
     Active Substance: FINASTERIDE
     Indication: Prostate cancer
     Dosage: 5 MG, QD
  5. DOXAZOSIN [Concomitant]
     Active Substance: DOXAZOSIN MESYLATE
     Indication: Prostate cancer
     Dosage: 2 MG, QD

REACTIONS (4)
  - Peripheral swelling [Unknown]
  - Furuncle [Unknown]
  - Pain in extremity [Unknown]
  - Off label use [Unknown]

NARRATIVE: CASE EVENT DATE: 20221101
